FAERS Safety Report 11320491 (Version 1)
Quarter: 2015Q3

REPORT INFORMATION
  Report Type: Spontaneous
  Country: US (occurrence: US)
  Receive Date: 20150729
  Receipt Date: 20150729
  Transmission Date: 20151125
  Serious: Yes (Other)
  Sender: FDA-Public Use
  Company Number: US-ASTRAZENECA-2015SE71298

PATIENT
  Sex: Male

DRUGS (1)
  1. SYMBICORT [Suspect]
     Active Substance: BUDESONIDE\FORMOTEROL FUMARATE DIHYDRATE
     Indication: DYSPNOEA
     Dosage: FREQUENCY UNKNOWN
     Route: 055
     Dates: start: 201501, end: 2015

REACTIONS (6)
  - Pancreatitis [Unknown]
  - Off label use [Unknown]
  - Secretion discharge [Unknown]
  - Blood pressure abnormal [Unknown]
  - Dysphagia [Unknown]
  - Product use issue [Unknown]

NARRATIVE: CASE EVENT DATE: 201501
